FAERS Safety Report 23311911 (Version 1)
Quarter: 2023Q4

REPORT INFORMATION
  Report Type: Spontaneous
  Country: KR (occurrence: KR)
  Receive Date: 20231219
  Receipt Date: 20231219
  Transmission Date: 20240109
  Serious: Yes (Hospitalization)
  Sender: FDA-Public Use
  Company Number: KR-SAMSUNG BIOEPIS-SB-2023-33076

PATIENT
  Age: 47 Year
  Sex: Female
  Weight: 58.4 kg

DRUGS (2)
  1. TRASTUZUMAB [Suspect]
     Active Substance: TRASTUZUMAB
     Indication: Breast cancer female
     Dosage: UNKNOWN
     Route: 042
     Dates: start: 20231205, end: 20231205
  2. ERIBULIN [Suspect]
     Active Substance: ERIBULIN
     Indication: Breast cancer female
     Dosage: UNKNOWN
     Route: 042
     Dates: start: 20231205, end: 20231205

REACTIONS (3)
  - Central nervous system lesion [Recovered/Resolved]
  - Brain oedema [Recovered/Resolved]
  - Cerebral haemorrhage [Recovered/Resolved]

NARRATIVE: CASE EVENT DATE: 20231207
